FAERS Safety Report 4584818-0 (Version None)
Quarter: 2005Q1

REPORT INFORMATION
  Report Type: 
  Country: None (occurrence: None)
  Receive Date: 20050214
  Receipt Date: 20050208
  Transmission Date: 20050727
  Serious: Yes (Hospitalization)
  Sender: FDA-Public Use
  Company Number: 1419

PATIENT
  Age: 15 Year
  Sex: Male

DRUGS (1)
  1. AMNESTEEM [Suspect]
     Indication: ACNE CYSTIC
     Dosage: 40MG, QD, PO
     Route: 048
     Dates: end: 20050130

REACTIONS (4)
  - BLOOD PRESSURE DIASTOLIC INCREASED [None]
  - DEPRESSION [None]
  - HEART RATE INCREASED [None]
  - INTENTIONAL MISUSE [None]
